FAERS Safety Report 4562894-9 (Version None)
Quarter: 2005Q1

REPORT INFORMATION
  Report Type: 
  Country: None (occurrence: None)
  Receive Date: 20050121
  Receipt Date: 20040118
  Transmission Date: 20050727
  Serious: Yes (Other)
  Sender: FDA-Public Use
  Company Number: 200510014BYL

PATIENT
  Age: 44 Year
  Sex: Male

DRUGS (1)
  1. GLUCOBAY [Suspect]
     Indication: DIABETES MELLITUS
     Dosage: 50 MG, BID ORAL
     Route: 048
     Dates: start: 20041210, end: 20050115

REACTIONS (1)
  - BLOOD CREATINE PHOSPHOKINASE INCREASED [None]
